FAERS Safety Report 7638319-3 (Version None)
Quarter: 2011Q3

REPORT INFORMATION
  Report Type: 
  Country: None (occurrence: None)
  Receive Date: 20110727
  Receipt Date: 20110727
  Transmission Date: 20111222
  Serious: Yes (Other)
  Sender: FDA-Public Use
  Company Number: None

PATIENT
  Age: 42 Year
  Sex: Female
  Weight: 68.038 kg

DRUGS (1)
  1. DEPAKOTE [Suspect]
     Indication: COMPLEX PARTIAL SEIZURES
     Dosage: 500MG
     Route: 048
     Dates: start: 20050526, end: 20110726

REACTIONS (2)
  - CONVULSION [None]
  - PRODUCT SUBSTITUTION ISSUE [None]
